FAERS Safety Report 9733888 (Version 1)
Quarter: 2013Q4

REPORT INFORMATION
  Report Type: Spontaneous
  Country: US (occurrence: US)
  Receive Date: 20131205
  Receipt Date: 20131205
  Transmission Date: 20140711
  Serious: Yes (Hospitalization)
  Sender: FDA-Public Use
  Company Number: US-ROXANE LABORATORIES, INC.-2013-RO-01905RO

PATIENT
  Age: 54 Year
  Sex: Female

DRUGS (2)
  1. METHOTREXATE [Suspect]
  2. AMIODARONE [Suspect]
     Dosage: 400 MG
     Route: 048

REACTIONS (2)
  - Hepatic cirrhosis [Unknown]
  - Hepatic steatosis [Unknown]
